FAERS Safety Report 5907762-2 (Version None)
Quarter: 2008Q3

REPORT INFORMATION
  Report Type: 
  Country: None (occurrence: None)
  Receive Date: 20080929
  Receipt Date: 20080915
  Transmission Date: 20090109
  Serious: Yes (Hospitalization)
  Sender: FDA-Public Use
  Company Number: 2008S1000206

PATIENT
  Age: 82 Year
  Sex: Male

DRUGS (9)
  1. ACITRETIN [Suspect]
     Indication: PSORIASIS
     Dosage: QD; PO
     Route: 048
     Dates: start: 20080611, end: 20080627
  2. NEXIUM [Concomitant]
  3. PRITORPLUS [Concomitant]
  4. CARDOPASPIRIN [Concomitant]
  5. LASIX [Concomitant]
  6. GLIBOMET [Concomitant]
  7. VENITRIN [Concomitant]
  8. NORVASC [Concomitant]
  9. CRESTOR [Concomitant]

REACTIONS (10)
  - ALANINE AMINOTRANSFERASE INCREASED [None]
  - ASTHENIA [None]
  - BLOOD ALKALINE PHOSPHATASE INCREASED [None]
  - C-REACTIVE PROTEIN INCREASED [None]
  - DRY MOUTH [None]
  - DYSPEPSIA [None]
  - DYSPNOEA [None]
  - GAMMA-GLUTAMYLTRANSFERASE INCREASED [None]
  - HEPATIC ENZYME INCREASED [None]
  - HEPATOMEGALY [None]
